FAERS Safety Report 4759815-2 (Version None)
Quarter: 2005Q3

REPORT INFORMATION
  Report Type: 
  Country: None (occurrence: None)
  Receive Date: 20050831
  Receipt Date: 20050831
  Transmission Date: 20060218
  Serious: Yes (Other)
  Sender: FDA-Public Use
  Company Number: None

PATIENT
  Sex: Female
  Weight: 75.2971 kg

DRUGS (2)
  1. ZOLOFT [Suspect]
     Indication: DEPRESSION
     Dosage: 200 MG 2 TABLETS TWICE /DA PO
     Route: 048
     Dates: start: 20050701, end: 20050824
  2. ZOLOFT [Suspect]
     Indication: OBSESSIVE-COMPULSIVE DISORDER
     Dosage: 200 MG 2 TABLETS TWICE /DA PO
     Route: 048
     Dates: start: 20050701, end: 20050824

REACTIONS (12)
  - ANGER [None]
  - DIVORCED [None]
  - DRUG EXPOSURE DURING PREGNANCY [None]
  - DRUG WITHDRAWAL SYNDROME [None]
  - HEARING IMPAIRED [None]
  - HOT FLUSH [None]
  - LETHARGY [None]
  - NIGHTMARE [None]
  - OVERWEIGHT [None]
  - PARAESTHESIA [None]
  - PREGNANCY [None]
  - VISUAL DISTURBANCE [None]
